FAERS Safety Report 4294422-X (Version None)
Quarter: 2004Q1

REPORT INFORMATION
  Report Type: 
  Country: None (occurrence: None)
  Receive Date: 20040211
  Receipt Date: 20040123
  Transmission Date: 20041129
  Serious: Yes (Other)
  Sender: FDA-Public Use
  Company Number: US_0401100201

PATIENT
  Sex: Female

DRUGS (1)
  1. HUMALOG [Suspect]

REACTIONS (4)
  - BLINDNESS UNILATERAL [None]
  - EYE HAEMORRHAGE [None]
  - GALLBLADDER OPERATION [None]
  - HYPERKERATOSIS [None]
